FAERS Safety Report 9828416 (Version 2)
Quarter: 2014Q1

REPORT INFORMATION
  Report Type: Spontaneous
  Country: US (occurrence: US)
  Receive Date: 20140117
  Receipt Date: 20140305
  Transmission Date: 20141002
  Serious: No
  Sender: FDA-Public Use
  Company Number: US-TEVA-456203USA

PATIENT
  Sex: Male

DRUGS (8)
  1. QVAR [Suspect]
  2. TRAMADOL [Interacting]
  3. LISINOPRIL [Interacting]
  4. OXYCODONE [Suspect]
  5. LIBRIUM [Suspect]
  6. NEURONTIN [Suspect]
  7. NITROSTAT [Concomitant]
  8. VENTOLIN [Concomitant]

REACTIONS (2)
  - Drug interaction [Unknown]
  - Drug screen positive [Not Recovered/Not Resolved]
